FAERS Safety Report 11825582 (Version 2)
Quarter: 2016Q1

REPORT INFORMATION
  Report Type: Spontaneous
  Country: US (occurrence: US)
  Receive Date: 20151211
  Receipt Date: 20160202
  Transmission Date: 20160525
  Serious: No
  Sender: FDA-Public Use
  Company Number: US-JNJFOC-20150716476

PATIENT
  Age: 74 Year
  Sex: Female

DRUGS (14)
  1. IMBRUVICA [Suspect]
     Active Substance: IBRUTINIB
     Indication: CHRONIC LYMPHOCYTIC LEUKAEMIA
     Route: 048
     Dates: start: 20150604, end: 2015
  2. ATIVAN [Concomitant]
     Active Substance: LORAZEPAM
  3. OXYGEN. [Concomitant]
     Active Substance: OXYGEN
  4. NORVASC [Concomitant]
     Active Substance: AMLODIPINE BESYLATE
  5. PRILOSEC [Concomitant]
     Active Substance: OMEPRAZOLE MAGNESIUM
  6. LOPRESSOR [Concomitant]
     Active Substance: METOPROLOL TARTRATE
  7. PREDNISONE. [Concomitant]
     Active Substance: PREDNISONE
  8. PEPTO-BISMOL [Concomitant]
     Active Substance: BISMUTH SUBSALICYLATE\CALCIUM CARBONATE
  9. TYLENOL [Concomitant]
     Active Substance: ACETAMINOPHEN
  10. ALLOPURINOL. [Concomitant]
     Active Substance: ALLOPURINOL
  11. PROBIOTIC [Concomitant]
     Active Substance: PROBIOTICS NOS
  12. IMBRUVICA [Suspect]
     Active Substance: IBRUTINIB
     Indication: CHRONIC LYMPHOCYTIC LEUKAEMIA
     Route: 048
     Dates: start: 201511
  13. IMBRUVICA [Suspect]
     Active Substance: IBRUTINIB
     Indication: CHRONIC LYMPHOCYTIC LEUKAEMIA
     Route: 048
     Dates: start: 2015, end: 2015
  14. IMMUNOGLOBULIN [Concomitant]
     Active Substance: HUMAN IMMUNOGLOBULIN G

REACTIONS (7)
  - Dizziness [Not Recovered/Not Resolved]
  - Myalgia [Not Recovered/Not Resolved]
  - Insomnia [Not Recovered/Not Resolved]
  - Diarrhoea [Not Recovered/Not Resolved]
  - Petechiae [Not Recovered/Not Resolved]
  - Paraesthesia [Not Recovered/Not Resolved]
  - Dry mouth [Unknown]

NARRATIVE: CASE EVENT DATE: 2015
